FAERS Safety Report 8568756-4 (Version None)
Quarter: 2012Q3

REPORT INFORMATION
  Report Type: 
  Country: None (occurrence: None)
  Receive Date: 20120803
  Receipt Date: 20120515
  Transmission Date: 20120928
  Serious: No
  Sender: FDA-Public Use
  Company Number: US-ABBOTT-12P-163-0935900-00

PATIENT
  Sex: Male
  Weight: 90.8 kg

DRUGS (6)
  1. ASCORBIC ACID [Suspect]
     Indication: PRODUCT USED FOR UNKNOWN INDICATION
  2. NIASPAN [Suspect]
  3. COQ10 [Concomitant]
     Indication: PRODUCT USED FOR UNKNOWN INDICATION
  4. ASPIRIN [Concomitant]
     Indication: PRODUCT USED FOR UNKNOWN INDICATION
     Dosage: BEFORE THE NIASPAN
  5. NIASPAN [Suspect]
     Indication: HIGH DENSITY LIPOPROTEIN
     Dates: start: 20100501
  6. STATIN [Concomitant]
     Indication: PRODUCT USED FOR UNKNOWN INDICATION

REACTIONS (5)
  - FLUSHING [None]
  - FEELING HOT [None]
  - HYPERHIDROSIS [None]
  - ERYTHEMA [None]
  - HEPATIC ENZYME INCREASED [None]
